FAERS Safety Report 17402850 (Version 7)
Quarter: 2021Q3

REPORT INFORMATION
  Report Type: Spontaneous
  Country: US (occurrence: US)
  Receive Date: 20200211
  Receipt Date: 20210715
  Transmission Date: 20211014
  Serious: Yes (Other)
  Sender: FDA-Public Use
  Company Number: US-PFIZER INC-2020037707

PATIENT
  Age: 74 Year
  Sex: Male
  Weight: 107 kg

DRUGS (5)
  1. LYRICA [Suspect]
     Active Substance: PREGABALIN
     Dosage: 300 MG, 1X/DAY (IN THE EVENING)
     Route: 048
     Dates: start: 2014
  2. LYRICA [Suspect]
     Active Substance: PREGABALIN
     Indication: NEUROPATHY PERIPHERAL
     Dosage: 150 MG, 2X/DAY(ONCE IN THE MORNING AND ONCE AT NIGHT.)
     Route: 048
     Dates: start: 2014
  3. LYRICA [Suspect]
     Active Substance: PREGABALIN
     Dosage: 600 MG
  4. MORPHINE SULFATE. [Concomitant]
     Active Substance: MORPHINE SULFATE
     Dosage: 60 MG, 3X/DAY (60MG THREE TIMES A DAY)
     Dates: start: 2014
  5. LYRICA [Suspect]
     Active Substance: PREGABALIN
     Dosage: 150 MG, 4X/DAY
     Route: 048

REACTIONS (3)
  - Blindness unilateral [Unknown]
  - Drug dependence [Not Recovered/Not Resolved]
  - Therapeutic product effect incomplete [Unknown]

NARRATIVE: CASE EVENT DATE: 20201030
